FAERS Safety Report 11653865 (Version 3)
Quarter: 2015Q4

REPORT INFORMATION
  Report Type: Report from Study
  Country: US (occurrence: US)
  Receive Date: 20151022
  Receipt Date: 20151202
  Transmission Date: 20160304
  Serious: Yes (Hospitalization, Other)
  Sender: FDA-Public Use
  Company Number: US-ALEXION PHARMACEUTICALS INC-A201504053

PATIENT
  Age: 16 Year
  Sex: Male

DRUGS (1)
  1. SOLIRIS [Suspect]
     Active Substance: ECULIZUMAB
     Indication: HAEMOLYTIC URAEMIC SYNDROME
     Dosage: 1200 MG, Q2W
     Route: 042
     Dates: start: 20150920

REACTIONS (3)
  - Epstein-Barr virus infection [Not Recovered/Not Resolved]
  - Haemolytic uraemic syndrome [Unknown]
  - Lymphadenitis [Not Recovered/Not Resolved]

NARRATIVE: CASE EVENT DATE: 20151014
